FAERS Safety Report 15292874 (Version 1)
Quarter: 2018Q3

REPORT INFORMATION
  Report Type: Spontaneous
  Country: US (occurrence: US)
  Receive Date: 20180806
  Receipt Date: 20180806
  Transmission Date: 20181010
  Serious: Yes (Disabling)
  Sender: FDA-Public Use
  Company Number: None

PATIENT
  Age: 28 Year
  Sex: Female

DRUGS (1)
  1. MIRENA [Suspect]
     Active Substance: LEVONORGESTREL
     Dates: start: 20170121, end: 20180424

REACTIONS (5)
  - Migraine [None]
  - Hypertension [None]
  - Menorrhagia [None]
  - Weight increased [None]
  - Muscle spasms [None]

NARRATIVE: CASE EVENT DATE: 20170201
